FAERS Safety Report 5389595-1 (Version None)
Quarter: 2007Q3

REPORT INFORMATION
  Report Type: 
  Country: None (occurrence: None)
  Receive Date: 20070713
  Receipt Date: 20070702
  Transmission Date: 20080115
  Serious: Yes (Hospitalization)
  Sender: FDA-Public Use
  Company Number: CHNY2007GB02459

PATIENT
  Age: 71 Year
  Sex: Male

DRUGS (2)
  1. HYOSCINE HBR HYT [Suspect]
     Indication: DYSPHAGIA
     Dosage: 1 DF, Q72H, TRANSDERMAL
     Route: 062
  2. FUROSEMIDE [Concomitant]

REACTIONS (2)
  - DEHYDRATION [None]
  - MALAISE [None]
